FAERS Safety Report 10474802 (Version 1)
Quarter: 2014Q3

REPORT INFORMATION
  Report Type: Spontaneous
  Country: GB (occurrence: GB)
  Receive Date: 20140925
  Receipt Date: 20140925
  Transmission Date: 20150326
  Serious: Yes (Other)
  Sender: FDA-Public Use
  Company Number: GB-AMGEN-GBRSP2014072887

PATIENT
  Sex: Female
  Weight: 45 kg

DRUGS (1)
  1. PROLIA [Suspect]
     Active Substance: DENOSUMAB
     Indication: OSTEOPOROSIS POSTMENOPAUSAL
     Route: 065

REACTIONS (14)
  - Gastrooesophageal reflux disease [Unknown]
  - Cerebrovascular disorder [Unknown]
  - Osteoarthritis [Unknown]
  - Depression [Unknown]
  - Urinary incontinence [Unknown]
  - Activities of daily living impaired [Unknown]
  - General physical health deterioration [Unknown]
  - Spinal deformity [Unknown]
  - Body height decreased [Unknown]
  - Mobility decreased [Unknown]
  - Breast cancer [Unknown]
  - Cardiac failure congestive [Unknown]
  - Asthenia [Unknown]
  - Back pain [Unknown]
